FAERS Safety Report 4539892-4 (Version None)
Quarter: 2004Q4

REPORT INFORMATION
  Report Type: 
  Country: None (occurrence: None)
  Receive Date: 20041223
  Receipt Date: 20041213
  Transmission Date: 20050328
  Serious: Yes (Hospitalization)
  Sender: FDA-Public Use
  Company Number: 2004112791

PATIENT
  Age: 45 Year
  Sex: Female

DRUGS (5)
  1. ALPRAZOLAM [Suspect]
     Indication: ILL-DEFINED DISORDER
     Dosage: 0.25 MG (0.25 MG, DAILY), ORAL
     Route: 048
  2. VALPROIC ACID [Suspect]
     Indication: ILL-DEFINED DISORDER
     Dosage: 1 GRAM (500 MG, BID), ORAL
     Route: 048
  3. VANCOMYCIN [Suspect]
     Indication: ILL-DEFINED DISORDER
     Dosage: 2 GRAM (2 GRAM, DAILY), INTRAVENOUS
     Route: 042
     Dates: start: 20040905, end: 20040917
  4. TIANEPTINE (TIANEPTINE) [Suspect]
     Indication: ILL-DEFINED DISORDER
     Dosage: 25 MG (12.5 MG, BID), ORAL
     Route: 048
  5. ALEPSAL (BELLADONNA EXTRACT, CAFFEINE, PHENOBARBITAL) [Suspect]
     Indication: ILL-DEFINED DISORDER
     Dosage: 100 MG (100 MG, DAILY), ORAL
     Route: 048

REACTIONS (3)
  - LEUKOPENIA [None]
  - SYSTEMIC LUPUS ERYTHEMATOSUS [None]
  - THROMBOCYTOPENIA [None]
